FAERS Safety Report 4467388-7 (Version None)
Quarter: 2004Q4

REPORT INFORMATION
  Report Type: 
  Country: None (occurrence: None)
  Receive Date: 20041006
  Receipt Date: 20040927
  Transmission Date: 20050328
  Serious: Yes (Other)
  Sender: FDA-Public Use
  Company Number: PHBS2004NL12789

PATIENT
  Age: 35 Year
  Sex: Male

DRUGS (4)
  1. TEGRETOL [Suspect]
     Indication: EPILEPSY
     Route: 048
  2. ATORVASTATIN CALCIUM [Concomitant]
  3. ARTIFICIAL TEARS [Concomitant]
  4. EZETIMIBE [Suspect]
     Indication: HYPERCHOLESTEROLAEMIA
     Route: 065

REACTIONS (2)
  - CONVULSION [None]
  - DRUG INTERACTION [None]
